FAERS Safety Report 13554937 (Version 2)
Quarter: 2017Q2

REPORT INFORMATION
  Report Type: Report from Study
  Country: US (occurrence: US)
  Receive Date: 20170517
  Receipt Date: 20170607
  Transmission Date: 20170830
  Serious: Yes (Other)
  Sender: FDA-Public Use
  Company Number: US-AMGEN-USASL2017071856

PATIENT
  Age: 62 Year
  Sex: Female

DRUGS (6)
  1. REPATHA [Suspect]
     Active Substance: EVOLOCUMAB
     Indication: HYPERCHOLESTEROLAEMIA
     Dosage: 140 MG, Q2WK
     Route: 065
  2. REPATHA [Suspect]
     Active Substance: EVOLOCUMAB
     Indication: MYOCARDIAL INFARCTION
  3. REPATHA [Suspect]
     Active Substance: EVOLOCUMAB
     Indication: DIABETES MELLITUS
  4. REPATHA [Suspect]
     Active Substance: EVOLOCUMAB
     Indication: CARDIAC FAILURE CONGESTIVE
  5. REPATHA [Suspect]
     Active Substance: EVOLOCUMAB
     Indication: CHRONIC KIDNEY DISEASE
  6. REPATHA [Suspect]
     Active Substance: EVOLOCUMAB
     Indication: HYPERTENSION

REACTIONS (4)
  - Abasia [Unknown]
  - Injection site pain [Unknown]
  - Therapeutic response unexpected [Unknown]
  - Fluid retention [Unknown]
